FAERS Safety Report 4367437-0 (Version None)
Quarter: 2004Q2

REPORT INFORMATION
  Report Type: 
  Country: None (occurrence: None)
  Receive Date: 20040528
  Receipt Date: 20040503
  Transmission Date: 20050107
  Serious: Yes (Hospitalization)
  Sender: FDA-Public Use
  Company Number: 12 MAY 2004

PATIENT
  Sex: Male
  Weight: 77.1115 kg

DRUGS (1)
  1. OLANZAPINE [Suspect]
     Indication: INVESTIGATION
     Dosage: 5 MG SINGLE ORAL DOSE
     Route: 048
     Dates: start: 20040425

REACTIONS (3)
  - POLYTRAUMATISM [None]
  - ROAD TRAFFIC ACCIDENT [None]
  - UPPER LIMB FRACTURE [None]
